FAERS Safety Report 7546028-4 (Version None)
Quarter: 2011Q2

REPORT INFORMATION
  Report Type: 
  Country: None (occurrence: None)
  Receive Date: 20110614
  Receipt Date: 20110603
  Transmission Date: 20111010
  Serious: Yes (Hospitalization)
  Sender: FDA-Public Use
  Company Number: US-ACTELION-A-US2011-49080

PATIENT

DRUGS (1)
  1. TRACLEER [Suspect]
     Indication: PULMONARY ARTERIAL HYPERTENSION
     Dosage: UNK
     Route: 048
     Dates: start: 20070907

REACTIONS (5)
  - PAIN IN JAW [None]
  - NAUSEA [None]
  - HYPERHIDROSIS [None]
  - FATIGUE [None]
  - DIABETES MELLITUS [None]
